FAERS Safety Report 21002175 (Version 1)
Quarter: 2022Q2

REPORT INFORMATION
  Report Type: Report from Study
  Country: IT (occurrence: IT)
  Receive Date: 20220624
  Receipt Date: 20220624
  Transmission Date: 20220721
  Serious: Yes (Other)
  Sender: FDA-Public Use
  Company Number: None

PATIENT
  Age: 25 Year
  Sex: Female

DRUGS (7)
  1. LITHIUM CARBONATE [Suspect]
     Active Substance: LITHIUM CARBONATE
     Indication: Product used for unknown indication
     Dosage: FORM STRENGTH : 300 MG CAPSULE RIGIDE , UNIT DOSE : 3 DF , FREQUENCY TIME : 1 DAYS , DURATION : 147
     Dates: start: 20220101, end: 20220528
  2. CLOZAPINE [Suspect]
     Active Substance: CLOZAPINE
     Indication: Product used for unknown indication
     Dosage: DURATION : 147 DAYS
     Dates: start: 20220101, end: 20220528
  3. OMEPRAZOLE [Suspect]
     Active Substance: OMEPRAZOLE
     Indication: Product used for unknown indication
     Dosage: DURATION : 147 DAYS
     Dates: start: 20220101, end: 20220528
  4. ADEMETIONINE [Suspect]
     Active Substance: ADEMETIONINE
     Indication: Product used for unknown indication
     Dosage: DURATION : 147 DAYS
     Dates: start: 20220101, end: 20220528
  5. NEURONTIN [Suspect]
     Active Substance: GABAPENTIN
     Indication: Product used for unknown indication
     Dosage: DURATION : 147 DAYS
     Dates: start: 20220101, end: 20220528
  6. XANAX [Suspect]
     Active Substance: ALPRAZOLAM
     Indication: Product used for unknown indication
     Dosage: FORM STRENGTH 0.50 MG , DURATION : 147 DAYS
     Dates: start: 20220101, end: 20220528
  7. VALIUM [Suspect]
     Active Substance: DIAZEPAM
     Indication: Product used for unknown indication
     Dosage: UNIT DOSE : 30 GTT , FREQUENCY TIME : 1 DAYS , DURATION : 147 DAYS
     Dates: start: 20220101, end: 20220528

REACTIONS (2)
  - Faecaloma [Recovering/Resolving]
  - Abdominal pain [Recovering/Resolving]

NARRATIVE: CASE EVENT DATE: 20220528
